FAERS Safety Report 9271746 (Version 1)
Quarter: 2013Q2

REPORT INFORMATION
  Report Type: Report from Study
  Country: TW (occurrence: TW)
  Receive Date: 20130506
  Receipt Date: 20130506
  Transmission Date: 20140414
  Serious: No
  Sender: FDA-Public Use
  Company Number: PHHY2013TW041250

PATIENT
  Age: 38 Year
  Sex: Male

DRUGS (16)
  1. AMN107 [Suspect]
     Dosage: 800 MG, UNK
     Dates: start: 20090813
  2. RANITIDINE HCL [Concomitant]
     Dosage: UNK
  3. IBUPROFEN [Concomitant]
     Indication: BONE PAIN
     Dosage: UNK
     Dates: start: 20100920, end: 20100926
  4. ACETAMINOPHEN [Concomitant]
     Indication: BONE PAIN
     Dosage: UNK
     Dates: start: 20110127, end: 20110203
  5. ACETAMINOPHEN [Concomitant]
     Dosage: UNK
     Dates: start: 20120301, end: 20120315
  6. ACETAMINOPHEN [Concomitant]
     Dosage: UNK
     Dates: start: 20120917, end: 20120923
  7. ETOFENAMATE [Concomitant]
     Indication: BONE PAIN
     Dosage: UNK
     Dates: start: 20110127, end: 20110324
  8. DEXAMETHASONE [Concomitant]
     Indication: MUCOSAL INFLAMMATION
     Dosage: UNK
     Dates: start: 20110519, end: 20110714
  9. BENZYDAMINE HYDROCHLORIDE [Concomitant]
     Indication: MUCOSAL INFLAMMATION
     Dosage: UNK
     Dates: start: 20110519, end: 20120105
  10. NAPROXEN [Concomitant]
     Indication: ARTHRALGIA
     Dosage: UNK
     Dates: start: 20110105, end: 20120119
  11. PROPRANOLOL [Concomitant]
     Indication: CHEST PAIN
     Dosage: UNK
     Dates: start: 20120816, end: 20120915
  12. PROPRANOLOL [Concomitant]
     Dosage: UNK
     Dates: end: 20121110
  13. KETOROLAC [Concomitant]
     Indication: CHEST PAIN
     Dosage: UNK
     Dates: start: 20120916, end: 20120916
  14. DICLOFENAC [Concomitant]
     Indication: CHEST PAIN
     Dosage: UNK
     Dates: start: 20120916, end: 20120918
  15. OXETHAZAINE [Concomitant]
     Indication: PROPHYLAXIS
     Dosage: UNK
     Dates: start: 20120916, end: 20120918
  16. TETRACYCLINE [Concomitant]
     Indication: DERMATITIS
     Dosage: UNK
     Dates: start: 20121011, end: 20121110

REACTIONS (1)
  - Abdominal pain [Unknown]
